FAERS Safety Report 4972651-7 (Version None)
Quarter: 2006Q1

REPORT INFORMATION
  Report Type: 
  Country: None (occurrence: None)
  Receive Date: 20060216
  Receipt Date: 20051031
  Transmission Date: 20060701
  Serious: Yes (Hospitalization, Other)
  Sender: FDA-Public Use
  Company Number: 200510IM000685

PATIENT
  Age: 52 Year
  Sex: Male
  Weight: 84.369 kg

DRUGS (14)
  1. INTERFERON GAMMA-1B [Suspect]
     Indication: HEPATITIS C
     Dosage: 100 UG, TIW, SUBCUTANEOUS
     Route: 058
     Dates: start: 20041130, end: 20051023
  2. INTERFERON ALFACON-1 [Suspect]
     Indication: HEPATITIS C
     Dosage: 9 UG, QD, SUBCUTANEOUS
     Route: 058
     Dates: start: 20041130, end: 20051023
  3. RIBAVIRIN [Suspect]
     Indication: HEPATITIS C
     Dosage: 1200 MG, QD, ORAL
     Route: 048
     Dates: start: 20041130, end: 20051023
  4. PREVACID [Concomitant]
  5. PAXIL [Concomitant]
  6. ALBUTEROL SULFATE AUTOHALER [Concomitant]
  7. TYLENOL [Concomitant]
  8. IBUPROFEN [Concomitant]
  9. MAALOX FAST BLOCKER [Concomitant]
  10. MEGACE [Concomitant]
  11. LORTAB [Concomitant]
  12. HYDROCORTISONE CREAM [Concomitant]
  13. VICODIN [Concomitant]
  14. ROBITUSSIN [Concomitant]

REACTIONS (2)
  - CONFUSIONAL STATE [None]
  - CONVULSION [None]
